FAERS Safety Report 6445555-0 (Version None)
Quarter: 2009Q4

REPORT INFORMATION
  Report Type: 
  Country: None (occurrence: None)
  Receive Date: 20091112
  Receipt Date: 20091103
  Transmission Date: 20100525
  Serious: Yes (Life-Threatening, Hospitalization, Other)
  Sender: FDA-Public Use
  Company Number: 2009US003944

PATIENT
  Age: 52 Year
  Sex: Male

DRUGS (2)
  1. PROGRAF [Suspect]
     Indication: LIVER TRANSPLANT
     Dates: start: 20080101
  2. MYCOPHENOLATE MOFETIL [Concomitant]

REACTIONS (23)
  - ANAEMIA [None]
  - ASCITES [None]
  - ATELECTASIS [None]
  - ATRIAL FIBRILLATION [None]
  - BACTERIAL SEPSIS [None]
  - BLOOD CULTURE POSITIVE [None]
  - CHOLESTASIS [None]
  - CLOSTRIDIAL INFECTION [None]
  - COAGULOPATHY [None]
  - COLITIS ISCHAEMIC [None]
  - DISSEMINATED INTRAVASCULAR COAGULATION [None]
  - ENCEPHALOPATHY [None]
  - ISCHAEMIC STROKE [None]
  - LIVER TRANSPLANT REJECTION [None]
  - METABOLIC ACIDOSIS [None]
  - MULTI-ORGAN FAILURE [None]
  - PLEURAL EFFUSION [None]
  - PNEUMOBILIA [None]
  - RENAL FAILURE ACUTE [None]
  - RESPIRATORY FAILURE [None]
  - SHOCK [None]
  - THALAMIC INFARCTION [None]
  - THROMBOCYTOPENIA [None]
